FAERS Safety Report 17554855 (Version 4)
Quarter: 2021Q2

REPORT INFORMATION
  Report Type: Spontaneous
  Country: US (occurrence: US)
  Receive Date: 20200318
  Receipt Date: 20210524
  Transmission Date: 20210716
  Serious: No
  Sender: FDA-Public Use
  Company Number: US-PFIZER INC-2020115610

PATIENT
  Age: 72 Year
  Sex: Female
  Weight: 98.02 kg

DRUGS (1)
  1. XELJANZ XR [Suspect]
     Active Substance: TOFACITINIB CITRATE
     Dosage: 11 MG, DAILY
     Route: 048

REACTIONS (6)
  - Palpitations [Unknown]
  - Skin atrophy [Unknown]
  - Skin discolouration [Unknown]
  - Weight increased [Not Recovered/Not Resolved]
  - Hypertension [Unknown]
  - Product dose omission issue [Unknown]

NARRATIVE: CASE EVENT DATE: 2020
